FAERS Safety Report 14437058 (Version 1)
Quarter: 2018Q1

REPORT INFORMATION
  Report Type: Report from Study
  Country: US (occurrence: US)
  Receive Date: 20180125
  Receipt Date: 20180125
  Transmission Date: 20180509
  Serious: Yes (Death, Other)
  Sender: FDA-Public Use
  Company Number: US-GILEAD-2018-0317024

PATIENT
  Age: 66 Year
  Sex: Female

DRUGS (7)
  1. AMBRISENTAN [Suspect]
     Active Substance: AMBRISENTAN
     Indication: PULMONARY HYPERTENSION
     Dosage: 10 MG, QD
     Route: 065
  2. METOPROLOL TARTRATE. [Concomitant]
     Active Substance: METOPROLOL TARTRATE
  3. TIZANIDINE. [Concomitant]
     Active Substance: TIZANIDINE
  4. SILDENAFIL. [Concomitant]
     Active Substance: SILDENAFIL
  5. FUROSEMIDE. [Concomitant]
     Active Substance: FUROSEMIDE
  6. VITAMIN D                          /00107901/ [Concomitant]
     Active Substance: ERGOCALCIFEROL
  7. ASPIRIN                            /00002701/ [Concomitant]
     Active Substance: ASPIRIN

REACTIONS (1)
  - Death [Fatal]
